FAERS Safety Report 6720251-0 (Version None)
Quarter: 2010Q2

REPORT INFORMATION
  Report Type: 
  Country: None (occurrence: None)
  Receive Date: 20100506
  Receipt Date: 20100426
  Transmission Date: 20101027
  Serious: Yes (Hospitalization)
  Sender: FDA-Public Use
  Company Number: 1000013562

PATIENT
  Age: 86 Year
  Sex: Female

DRUGS (13)
  1. MEMANTINE HCL [Suspect]
     Indication: DEMENTIA ALZHEIMER'S TYPE
     Dosage: 0.5 DOSAGE FORMS (0.5 DOSAGE FORMS, 1 IN 1 D), ORAL
     Route: 048
     Dates: end: 20090424
  2. NEULEPTIL (DROPS (FOR ORAL USE)) [Suspect]
     Indication: ABNORMAL BEHAVIOUR
     Dosage: 10 GM (5 GM, 2 IN 1 D), ORAL
     Route: 048
     Dates: start: 20090417, end: 20090417
  3. ALPRAZOLAM [Suspect]
     Indication: ANXIETY
     Dosage: 1.5 MG (1.5 MG, 1 IN 1 D), ORAL
     Route: 048
     Dates: start: 20090417
  4. NORSET [Suspect]
     Indication: DEPRESSION
     Dosage: 15 MG (15 MG, 1 IN 1 D), ORAL
     Route: 048
  5. NEXIUM (20 MILLIGRAM) [Concomitant]
  6. SPECIAFOLDINE [Concomitant]
  7. DIFFU K [Concomitant]
  8. MOTILIUM [Concomitant]
  9. DEBRIDAT [Concomitant]
  10. DOLIPRANE [Concomitant]
  11. DIAMICRON [Concomitant]
  12. RIVOTRIL [Concomitant]
  13. EQUANIL [Concomitant]

REACTIONS (6)
  - ABNORMAL BEHAVIOUR [None]
  - CEREBRAL CALCIFICATION [None]
  - CONDITION AGGRAVATED [None]
  - DEMYELINATION [None]
  - LOCKED-IN SYNDROME [None]
  - RENAL IMPAIRMENT [None]
